FAERS Safety Report 8979079 (Version 2)
Quarter: 2013Q1

REPORT INFORMATION
  Report Type: Report from Study
  Country: US (occurrence: US)
  Receive Date: 20121221
  Receipt Date: 20130301
  Transmission Date: 20140127
  Serious: Yes (Hospitalization, Other)
  Sender: FDA-Public Use
  Company Number: US-ROCHE-GNE254268

PATIENT
  Age: 63 Year
  Sex: Female
  Weight: 76.27 kg

DRUGS (19)
  1. XOLAIR [Suspect]
     Indication: ASTHMA
     Dosage: 375 MG, Q2W
     Route: 058
     Dates: start: 20071218, end: 200801
  2. XOLAIR [Suspect]
     Route: 058
     Dates: start: 20071201
  3. XOLAIR [Suspect]
     Route: 058
     Dates: start: 20080101, end: 20081115
  4. ALBUTEROL [Concomitant]
     Indication: ASTHMA
     Dosage: 2 PUFF, QID, DOSE=2 PUFF, DAILY DOSE=8 PUFF
     Route: 065
     Dates: start: 200710
  5. ALBUTEROL [Concomitant]
     Dosage: 2 TABS, INHALAR
     Route: 065
     Dates: start: 20070404
  6. ASMANEX [Concomitant]
     Indication: ASTHMA
     Dosage: 2 PUFF, BID, DOSE=2 PUFF, DAILY DOSE=4 PUFF
     Route: 065
     Dates: start: 200710
  7. ASMANEX [Concomitant]
     Route: 065
     Dates: start: 20070404
  8. SINGULAIR [Concomitant]
     Indication: ASTHMA
     Dosage: 10 MG, QHS
     Route: 065
     Dates: start: 200710
  9. SINGULAIR [Concomitant]
     Route: 048
     Dates: start: 20070404
  10. FIORICET [Concomitant]
     Dosage: 1 TAB AFETR 4 PM
     Route: 048
     Dates: start: 2006
  11. CELEXA [Concomitant]
     Indication: DEPRESSION
     Route: 048
     Dates: start: 20070404
  12. ASPIRIN [Concomitant]
     Route: 065
  13. ALLEGRA [Concomitant]
     Route: 065
  14. VERAPAMIL [Concomitant]
     Route: 065
  15. COUMADIN [Concomitant]
     Route: 065
  16. AMBIEN [Concomitant]
     Route: 065
  17. PREDNISONE [Concomitant]
     Dosage: EVERY OTHER DAY
     Route: 065
  18. ATIVAN [Concomitant]
     Route: 065
  19. PRILOSEC [Concomitant]

REACTIONS (7)
  - Pulmonary embolism [Recovered/Resolved]
  - Polyserositis [Unknown]
  - Pericardial effusion [Unknown]
  - Aspiration pleural cavity [Unknown]
  - Pleural effusion [Recovering/Resolving]
  - Asthma [Unknown]
  - Insomnia [Unknown]
